FAERS Safety Report 10498094 (Version 1)
Quarter: 2014Q4

REPORT INFORMATION
  Report Type: Spontaneous
  Country: US (occurrence: None)
  Receive Date: 20141002
  Receipt Date: 20141002
  Transmission Date: 20150528
  Serious: Yes (Death)
  Sender: FDA-Public Use
  Company Number: INS201409-000202

PATIENT
  Age: 50 Year
  Sex: Male
  Weight: 64.77 kg

DRUGS (10)
  1. TRUVADA (TENOFOVIR, EMTRICITABINE) (TENOFOVIR, EMTRICITABINE) [Concomitant]
  2. ETRAVIRINE (ETRAVIRINE) (ETRAVIRINE) [Concomitant]
  3. SUBSYS [Suspect]
     Active Substance: FENTANYL
     Indication: METASTATIC PAIN
     Dosage: (400 MCG, PRN EVERY FOUR TO SIX HRS), SUBLINGUAL
     Route: 060
     Dates: start: 20140820
  4. RITONAVIR (RITONAVIR) (RITONAVIR) [Concomitant]
  5. GABAPENTIN (GABAPENTIN) (GABAPENTIN) [Concomitant]
     Active Substance: GABAPENTIN
  6. TRAZODONE [Concomitant]
     Active Substance: TRAZODONE HYDROCHLORIDE
  7. LIPITOR (ATORVASTATIN CALCIUM) (ATORVASTATIN CALCIUM) [Concomitant]
  8. CYMBALTA (DULOXETINE) (DULOXETINE) [Concomitant]
  9. MS-CONTIN (MORPHINE SULFATE) (MORPHINE SULFATE) [Concomitant]
  10. PERIOSTAT [Concomitant]
     Active Substance: DOXYCYCLINE HYCLATE

REACTIONS (1)
  - Death [None]
